FAERS Safety Report 21244641 (Version 1)
Quarter: 2022Q3

REPORT INFORMATION
  Report Type: Spontaneous
  Country: US (occurrence: US)
  Receive Date: 20220823
  Receipt Date: 20220823
  Transmission Date: 20221026
  Serious: Yes (Other)
  Sender: FDA-Public Use
  Company Number: US-TEVA-2022-US-2066668

PATIENT
  Sex: Female

DRUGS (1)
  1. CLONAZEPAM [Suspect]
     Active Substance: CLONAZEPAM
     Indication: Anxiety disorder
     Dosage: 2MG AND 0.5 MG TABLET PER DAY
     Route: 065
     Dates: start: 2020

REACTIONS (2)
  - Urinary retention [Unknown]
  - Drug ineffective [Unknown]
